FAERS Safety Report 6047099-7 (Version None)
Quarter: 2009Q1

REPORT INFORMATION
  Report Type: 
  Country: None (occurrence: None)
  Receive Date: 20090122
  Receipt Date: 20090115
  Transmission Date: 20090719
  Serious: Yes (Life-Threatening)
  Sender: FDA-Public Use
  Company Number: IT-AVENTIS-200910611GDDC

PATIENT
  Age: 83 Year
  Sex: Male

DRUGS (2)
  1. EUGLUCON [Suspect]
     Indication: DIABETES MELLITUS
     Route: 048
     Dates: start: 20080101, end: 20081109
  2. UNIPRIL                            /00885601/ [Concomitant]
     Indication: ESSENTIAL HYPERTENSION
     Dates: start: 20080101, end: 20081109

REACTIONS (2)
  - HYPOGLYCAEMIA [None]
  - SOPOR [None]
